FAERS Safety Report 4377300-7 (Version None)
Quarter: 2004Q2

REPORT INFORMATION
  Report Type: 
  Country: None (occurrence: None)
  Receive Date: 20040614
  Receipt Date: 20040614
  Transmission Date: 20050107
  Serious: Yes (Other)
  Sender: FDA-Public Use
  Company Number: None

PATIENT
  Age: 52 Year
  Sex: Female
  Weight: 74.8435 kg

DRUGS (1)
  1. LEVAQUIN [Suspect]
     Indication: NAIL BED INFECTION
     Dosage: 1 PILL 10 DAYS ORAL
     Route: 048

REACTIONS (6)
  - ACTIVITIES OF DAILY LIVING IMPAIRED [None]
  - FEELING ABNORMAL [None]
  - HEART RATE IRREGULAR [None]
  - IMPAIRED DRIVING ABILITY [None]
  - INSOMNIA [None]
  - TENDONITIS [None]
